FAERS Safety Report 7231540-8 (Version None)
Quarter: 2011Q1

REPORT INFORMATION
  Report Type: 
  Country: None (occurrence: None)
  Receive Date: 20110118
  Receipt Date: 20110106
  Transmission Date: 20110831
  Serious: Yes (Hospitalization, Disabling, Other)
  Sender: FDA-Public Use
  Company Number: US-CELGENEUS-163-21880-10082586

PATIENT
  Sex: Male

DRUGS (26)
  1. REVLIMID [Suspect]
     Route: 048
     Dates: start: 20100803, end: 20100928
  2. GLYBURIDE [Concomitant]
     Route: 048
  3. ZINGIBER OFFICINALIS [Concomitant]
     Route: 065
  4. LEVETIRACETAM [Concomitant]
     Route: 048
  5. RITUXAN [Concomitant]
     Route: 065
     Dates: start: 20101122
  6. ALLOPURINOL [Concomitant]
     Route: 048
  7. ASCORBIC ACID [Concomitant]
     Route: 048
  8. PREDNISONE [Concomitant]
     Route: 048
  9. NOVOLOG [Concomitant]
     Dosage: 10 UNITS
     Route: 058
  10. POTASSIUM CHLORIDE [Concomitant]
     Route: 048
  11. LANTUS [Concomitant]
     Dosage: 100 UNIT/ML, 30 UNITS
     Route: 058
  12. NEULASTA [Concomitant]
     Route: 065
     Dates: start: 20101021
  13. METHYLPREDNISOLONE ACETATE [Concomitant]
     Route: 051
     Dates: start: 20101025
  14. LISINOPRIL [Concomitant]
     Route: 048
  15. REVLIMID [Suspect]
  16. LEVETIRACETAM [Concomitant]
     Route: 048
  17. PREDNISONE [Concomitant]
     Route: 048
  18. PREDNISONE [Concomitant]
     Route: 048
  19. COLCHICINE [Concomitant]
     Route: 048
     Dates: start: 20100401, end: 20101201
  20. FINASTERIDE [Concomitant]
     Route: 048
  21. OMEPRAZOLE MAGNESIUM [Concomitant]
     Route: 048
  22. PREDNISONE [Concomitant]
     Route: 065
     Dates: start: 20101104
  23. PREDNISONE [Concomitant]
     Route: 065
     Dates: start: 20101121
  24. CINNAMON [Concomitant]
     Route: 048
  25. LABETALOL [Concomitant]
     Route: 048
  26. PREDNISONE [Concomitant]
     Route: 065
     Dates: start: 20101108

REACTIONS (4)
  - SOMNOLENCE [None]
  - PANCYTOPENIA [None]
  - DIABETES MELLITUS INADEQUATE CONTROL [None]
  - FATIGUE [None]
